FAERS Safety Report 6153685-6 (Version None)
Quarter: 2009Q2

REPORT INFORMATION
  Report Type: 
  Country: None (occurrence: None)
  Receive Date: 20090413
  Receipt Date: 20090330
  Transmission Date: 20091009
  Serious: Yes (Other)
  Sender: FDA-Public Use
  Company Number: GB-BAUSCH-2006BL005405

PATIENT
  Age: 29 Year
  Sex: Female

DRUGS (7)
  1. PREDNISOLONE [Suspect]
     Indication: HERPES GESTATIONIS
  2. PREDNISOLONE [Suspect]
  3. PREDNISOLONE [Suspect]
  4. ACTRAPID HUMAN [Concomitant]
  5. ERYTHROMYCIN [Concomitant]
     Indication: INFECTION PROPHYLAXIS
  6. BETAMETHASONE [Concomitant]
     Indication: HERPES GESTATIONIS
     Route: 061
  7. POTASSIUM PERMANGANATE [Concomitant]
     Indication: HERPES GESTATIONIS
     Route: 061

REACTIONS (4)
  - DRUG EXPOSURE DURING PREGNANCY [None]
  - GESTATIONAL DIABETES [None]
  - NORMAL NEWBORN [None]
  - PREMATURE RUPTURE OF MEMBRANES [None]
